FAERS Safety Report 6841402-3 (Version None)
Quarter: 2010Q3

REPORT INFORMATION
  Report Type: 
  Country: None (occurrence: None)
  Receive Date: 20100709
  Receipt Date: 20100625
  Transmission Date: 20110219
  Serious: Yes (Other)
  Sender: FDA-Public Use
  Company Number: ACO_01243_2010

PATIENT
  Age: 66 Year
  Sex: Female
  Weight: 54.4316 kg

DRUGS (5)
  1. AMPYRA [Suspect]
     Indication: MULTIPLE SCLEROSIS
     Dosage: (10 MG BID ORAL)
     Route: 048
     Dates: start: 20100507
  2. PREMPRO [Concomitant]
  3. CHOLESTEROL MEDICATION [Concomitant]
  4. LEXAPRO [Concomitant]
  5. THYROID MEDICATION [Concomitant]

REACTIONS (1)
  - DYSKINESIA [None]
